FAERS Safety Report 25748766 (Version 1)
Quarter: 2025Q3

REPORT INFORMATION
  Report Type: Spontaneous
  Country: US (occurrence: US)
  Receive Date: 20250902
  Receipt Date: 20250902
  Transmission Date: 20251021
  Serious: No
  Sender: SANOFI AVENTIS
  Company Number: US-SA-2025SA259979

PATIENT
  Age: 56 Year
  Sex: Female

DRUGS (21)
  1. REZUROCK [Suspect]
     Active Substance: BELUMOSUDIL
     Indication: Graft versus host disease
     Dosage: 200 MG, QD
     Route: 048
     Dates: start: 20221021
  2. BENZONATATE [Concomitant]
     Active Substance: BENZONATATE
  3. CALCIUM CITRATE\CHOLECALCIFEROL [Concomitant]
     Active Substance: CALCIUM CITRATE\CHOLECALCIFEROL
  4. CLONAZEPAM [Concomitant]
     Active Substance: CLONAZEPAM
  5. VITAMIN B12 [Concomitant]
     Active Substance: CYANOCOBALAMIN
  6. EVENITY [Concomitant]
     Active Substance: ROMOSOZUMAB-AQQG
  7. GABAPENTIN [Concomitant]
     Active Substance: GABAPENTIN
  8. GUAIFENESIN [Concomitant]
     Active Substance: GUAIFENESIN
  9. JAKAFI [Concomitant]
     Active Substance: RUXOLITINIB
  10. LEVOTHYROXINE [Concomitant]
     Active Substance: LEVOTHYROXINE
  11. LIPITOR [Concomitant]
     Active Substance: ATORVASTATIN CALCIUM
  12. LISINOPRIL [Concomitant]
     Active Substance: LISINOPRIL
  13. METFORMIN [Concomitant]
     Active Substance: METFORMIN HYDROCHLORIDE
  14. MONTELUKAST [Concomitant]
     Active Substance: MONTELUKAST
     Dosage: UNK UNK, QD
  15. IRON [Concomitant]
     Active Substance: IRON
  16. PREDNISONE [Concomitant]
     Active Substance: PREDNISONE
  17. PROPRANOLOL [Concomitant]
     Active Substance: PROPRANOLOL HYDROCHLORIDE
  18. SAXAGLIPTIN [Concomitant]
     Active Substance: SAXAGLIPTIN
  19. SIROLIMUS [Concomitant]
     Active Substance: SIROLIMUS
  20. VALACYCLOVIR [Concomitant]
     Active Substance: VALACYCLOVIR HYDROCHLORIDE
  21. VITAMIN D3 [Concomitant]
     Active Substance: CHOLECALCIFEROL

REACTIONS (1)
  - COVID-19 [Recovering/Resolving]
